FAERS Safety Report 15156709 (Version 3)
Quarter: 2018Q3

REPORT INFORMATION
  Report Type: Spontaneous
  Country: CN (occurrence: CN)
  Receive Date: 20180717
  Receipt Date: 20180815
  Transmission Date: 20181010
  Serious: Yes (Other)
  Sender: FDA-Public Use
  Company Number: CN-ASTRAZENECA-2018SE91118

PATIENT
  Age: 57 Year
  Sex: Female

DRUGS (1)
  1. IRESSA [Suspect]
     Active Substance: GEFITINIB
     Indication: LUNG NEOPLASM MALIGNANT
     Dosage: 250 MILLIGRAM ONCE EVERY THREE TO FIVE DAYS.
     Route: 048

REACTIONS (3)
  - Drug resistance [Unknown]
  - Metastases to central nervous system [Unknown]
  - Abdominal discomfort [Unknown]
